FAERS Safety Report 23097739 (Version 1)
Quarter: 2023Q4

REPORT INFORMATION
  Report Type: Spontaneous
  Country: PL (occurrence: PL)
  Receive Date: 20231023
  Receipt Date: 20231023
  Transmission Date: 20240109
  Serious: Yes (Hospitalization, Other)
  Sender: FDA-Public Use
  Company Number: PL-MLMSERVICE-20231010-4599273-1

PATIENT
  Age: 77 Year
  Sex: Female

DRUGS (6)
  1. RAMIPRIL [Suspect]
     Active Substance: RAMIPRIL
     Indication: Left ventricular failure
     Dosage: REDUCED
  2. SPIRONOLACTONE [Suspect]
     Active Substance: SPIRONOLACTONE
     Indication: Left ventricular failure
  3. CARVEDILOL [Suspect]
     Active Substance: CARVEDILOL
     Indication: Left ventricular failure
  4. DAPAGLIFLOZIN [Suspect]
     Active Substance: DAPAGLIFLOZIN
     Indication: Left ventricular failure
  5. APIXABAN [Concomitant]
     Active Substance: APIXABAN
     Indication: Anticoagulant therapy
     Route: 048
  6. RAMIPRIL [Suspect]
     Active Substance: RAMIPRIL
     Indication: Left ventricular failure

REACTIONS (4)
  - Hypotension [Unknown]
  - Renal impairment [Recovered/Resolved]
  - Hyperkalaemia [Recovered/Resolved]
  - Cardiac failure [Unknown]
